FAERS Safety Report 11046394 (Version 3)
Quarter: 2015Q2

REPORT INFORMATION
  Report Type: Spontaneous
  Country: US (occurrence: US)
  Receive Date: 20150420
  Receipt Date: 20150529
  Transmission Date: 20150821
  Serious: Yes (Death, Hospitalization, Other)
  Sender: FDA-Public Use
  Company Number: US-AMGEN-USASP2015036647

PATIENT
  Age: 69 Year
  Sex: Male
  Weight: 70.75 kg

DRUGS (9)
  1. ACETAMINOPHEN. [Concomitant]
     Active Substance: ACETAMINOPHEN
     Dosage: 650 MG, 1 TABLET AS NEEDED, EVERY 6 HRS
     Route: 048
  2. SOLU-MEDROL [Concomitant]
     Active Substance: METHYLPREDNISOLONE SODIUM SUCCINATE
     Dosage: UNK
  3. HYDROCHLOROTHIAZIDE. [Concomitant]
     Active Substance: HYDROCHLOROTHIAZIDE
     Dosage: 25 MG, QD
     Route: 048
  4. TRAMADOL HCL [Concomitant]
     Active Substance: TRAMADOL HYDROCHLORIDE
     Dosage: 50 MG, 1 TABLET AS NEEDED FOR PAIN, EVERY 6 HRS PRN
     Route: 048
  5. PREDNISONE. [Concomitant]
     Active Substance: PREDNISONE
     Dosage: 5 MG, QD
     Route: 048
  6. POTASSIUM 99 [Concomitant]
     Dosage: UNK
     Route: 048
  7. ENBREL [Suspect]
     Active Substance: ETANERCEPT
     Indication: RHEUMATOID ARTHRITIS
     Dosage: 50 MG, QWK
     Route: 058
     Dates: start: 201408, end: 20150105
  8. IBUPROFEN. [Concomitant]
     Active Substance: IBUPROFEN
     Dosage: 200 MG, 1 TABLET
     Route: 048
  9. CALCIUM MAGNESIUM                  /00591201/ [Concomitant]
     Dosage: NOT TAKING/PRN

REACTIONS (58)
  - Dementia [Fatal]
  - Platelet count increased [Unknown]
  - Red blood cell sedimentation rate increased [Unknown]
  - Rheumatoid factor increased [Unknown]
  - Mobility decreased [Unknown]
  - Activities of daily living impaired [Unknown]
  - Fall [Unknown]
  - Iron binding capacity total decreased [Unknown]
  - Arthralgia [Unknown]
  - Depression [Unknown]
  - Osteoarthritis [Unknown]
  - Aspartate aminotransferase decreased [Unknown]
  - Central nervous system lesion [Unknown]
  - Cognitive disorder [Unknown]
  - Haemoglobin decreased [Unknown]
  - Blood iron decreased [Unknown]
  - Fatigue [Unknown]
  - Antineutrophil cytoplasmic antibody positive [Unknown]
  - Transferrin saturation decreased [Unknown]
  - Mean cell haemoglobin concentration decreased [Unknown]
  - Visual impairment [Unknown]
  - Sleep disorder [Unknown]
  - White blood cell count increased [Unknown]
  - Demyelination [Fatal]
  - Cerebral disorder [Unknown]
  - Malaise [Unknown]
  - Dysstasia [Unknown]
  - Albumin globulin ratio decreased [Unknown]
  - Protein total increased [Unknown]
  - Globulins increased [Unknown]
  - Blood alkaline phosphatase decreased [Unknown]
  - Cerebral haemorrhage [Unknown]
  - Blindness [Unknown]
  - Musculoskeletal stiffness [Unknown]
  - Blood pressure abnormal [Unknown]
  - Peripheral swelling [Unknown]
  - Muscular weakness [Unknown]
  - Specific gravity urine increased [Unknown]
  - Pain in extremity [Unknown]
  - Inflammation [Unknown]
  - Cough [Unknown]
  - Hyperhidrosis [Unknown]
  - Emphysema [Unknown]
  - Cataract [Unknown]
  - Anaemia [Unknown]
  - Personality change [Unknown]
  - Cerebral infarction [Unknown]
  - Confusional state [Unknown]
  - Thrombocytosis [Unknown]
  - Gait disturbance [Unknown]
  - Blood sodium decreased [Unknown]
  - Haematocrit decreased [Unknown]
  - Red cell distribution width increased [Unknown]
  - Red blood cell count decreased [Unknown]
  - Serum ferritin increased [Unknown]
  - Gastrooesophageal reflux disease [Unknown]
  - Pyrexia [Unknown]
  - Neuropathy peripheral [Unknown]

NARRATIVE: CASE EVENT DATE: 2015
